FAERS Safety Report 8610229-4 (Version None)
Quarter: 2012Q3

REPORT INFORMATION
  Report Type: 
  Country: None (occurrence: None)
  Receive Date: 20120822
  Receipt Date: 20120821
  Transmission Date: 20120928
  Serious: Yes (Other)
  Sender: FDA-Public Use
  Company Number: US-AMGEN-USASP2012047518

PATIENT
  Age: 67 Year
  Sex: Male

DRUGS (8)
  1. ENBREL [Suspect]
     Indication: PSORIASIS
     Dosage: 25 MG, 2 TIMES/WK
  2. LASIX [Concomitant]
     Dosage: UNK MG, UNK
  3. FISH OIL [Concomitant]
     Dosage: UNK MG, UNK
  4. BENICAR [Concomitant]
     Dosage: UNK MG, UNK
  5. VITAMIN D [Concomitant]
     Dosage: UNK MG, UNK
  6. ELOCON [Concomitant]
     Dosage: UNK
  7. SIMVASTATIN [Concomitant]
     Dosage: UNK MG, UNK
  8. CLONIDINE [Concomitant]
     Dosage: UNK MG, UNK

REACTIONS (2)
  - CONGENITAL CYSTIC KIDNEY DISEASE [None]
  - PLATELET COUNT DECREASED [None]
